FAERS Safety Report 7529336-2 (Version None)
Quarter: 2011Q2

REPORT INFORMATION
  Report Type: 
  Country: None (occurrence: None)
  Receive Date: 20110607
  Receipt Date: 20050809
  Transmission Date: 20111010
  Serious: Yes (Death)
  Sender: FDA-Public Use
  Company Number: PHHO2005CA12610

PATIENT
  Sex: Male

DRUGS (3)
  1. TEMAZEPAM [Concomitant]
  2. TRAZODONE HCL [Concomitant]
  3. EXELON [Suspect]
     Indication: DEMENTIA ALZHEIMER'S TYPE
     Dates: start: 20040512

REACTIONS (1)
  - DEATH [None]
